FAERS Safety Report 8193457-4 (Version None)
Quarter: 2012Q1

REPORT INFORMATION
  Report Type: 
  Country: None (occurrence: None)
  Receive Date: 20120308
  Receipt Date: 20120306
  Transmission Date: 20120608
  Serious: Yes (Hospitalization, Other)
  Sender: FDA-Public Use
  Company Number: US-PFIZER INC-2012060900

PATIENT
  Sex: Female
  Weight: 68.027 kg

DRUGS (5)
  1. COUMADIN [Suspect]
     Indication: ANTICOAGULANT THERAPY
     Dosage: 7.5 MG, UNK
  2. COUMADIN [Suspect]
     Dosage: 5 MG, UNK
  3. XANAX [Concomitant]
     Indication: ANXIETY
     Dosage: 1 MG, 3X/DAY
  4. CHANTIX [Suspect]
     Indication: SMOKING CESSATION THERAPY
     Dosage: UNK
  5. ALBUTEROL [Concomitant]
     Indication: ASTHMA
     Dosage: TWO PUFFS, AS NEEDED

REACTIONS (4)
  - POOR PERIPHERAL CIRCULATION [None]
  - SKIN DISCOLOURATION [None]
  - DRY SKIN [None]
  - THROMBOSIS [None]
